FAERS Safety Report 13774610 (Version 1)
Quarter: 2017Q3

REPORT INFORMATION
  Report Type: Spontaneous
  Country: US (occurrence: US)
  Receive Date: 20170720
  Receipt Date: 20170720
  Transmission Date: 20171127
  Serious: Yes (Life-Threatening, Hospitalization)
  Sender: FDA-Public Use
  Company Number: None

PATIENT
  Age: 29 Year
  Sex: Female
  Weight: 48 kg

DRUGS (2)
  1. KARIVA [Suspect]
     Active Substance: DESOGESTREL\ETHINYL ESTRADIOL
     Indication: MENSTRUAL CYCLE MANAGEMENT
     Dosage: ?          OTHER DOSE:MG;?
     Route: 048
     Dates: start: 20150501, end: 20170716
  2. KARIVA [Suspect]
     Active Substance: DESOGESTREL\ETHINYL ESTRADIOL
     Indication: CONTRACEPTION
     Dosage: ?          OTHER DOSE:MG;?
     Route: 048
     Dates: start: 20150501, end: 20170716

REACTIONS (3)
  - Abdominal pain [None]
  - Fibrin D dimer increased [None]
  - Pulmonary embolism [None]

NARRATIVE: CASE EVENT DATE: 20170717
